FAERS Safety Report 6860131-3 (Version None)
Quarter: 2010Q3

REPORT INFORMATION
  Report Type: 
  Country: None (occurrence: None)
  Receive Date: 20100720
  Receipt Date: 20100708
  Transmission Date: 20110219
  Serious: Yes (Hospitalization, Other)
  Sender: FDA-Public Use
  Company Number: US-PFIZER INC-2010038928

PATIENT
  Sex: Female

DRUGS (7)
  1. CHANTIX [Suspect]
     Indication: SMOKING CESSATION THERAPY
     Dosage: UNK
     Route: 048
     Dates: start: 20080205, end: 20080401
  2. CHANTIX [Suspect]
     Dosage: UNK MG, UNK
  3. LEVOXYL [Concomitant]
     Indication: THYROID DISORDER
     Dosage: UNK
     Dates: start: 20000101
  4. NITROGLYCERIN [Concomitant]
     Indication: RAYNAUD'S PHENOMENON
     Dosage: UNK
     Dates: start: 20000101
  5. NEXIUM [Concomitant]
     Indication: GASTRIC DISORDER
     Dosage: UNK
     Dates: start: 20000101
  6. CELEBREX [Concomitant]
     Indication: RHEUMATOID ARTHRITIS
     Dosage: UNK
     Dates: start: 20060101
  7. PERCOCET [Concomitant]
     Indication: PAIN

REACTIONS (6)
  - AGGRESSION [None]
  - AGITATION [None]
  - ANXIETY [None]
  - DEPRESSION [None]
  - INTENTIONAL OVERDOSE [None]
  - SUICIDE ATTEMPT [None]
